FAERS Safety Report 8966201 (Version 1)
Quarter: 2012Q4

REPORT INFORMATION
  Report Type: Report from Study
  Country: DE (occurrence: DE)
  Receive Date: 20121214
  Receipt Date: 20121214
  Transmission Date: 20130627
  Serious: Yes (Hospitalization, Other)
  Sender: FDA-Public Use
  Company Number: DE-GENZYME-THYM-1003518

PATIENT
  Age: 45 Year
  Sex: Male

DRUGS (4)
  1. THYMOGLOBULINE [Suspect]
     Indication: RENAL TRANSPLANT
     Dosage: UNK
     Route: 065
     Dates: start: 20100920
  2. TACROLIMUS [Suspect]
     Indication: RENAL TRANSPLANT
     Dosage: 10 mg, UNK
     Route: 048
     Dates: start: 20100920
  3. CELLCEPT [Suspect]
     Indication: RENAL TRANSPLANT
     Dosage: 1500 mg, UNK
     Route: 048
     Dates: start: 20100920, end: 20101102
  4. DECORTIN H [Suspect]
     Indication: RENAL TRANSPLANT
     Dosage: UNK
     Route: 048
     Dates: start: 20100920

REACTIONS (3)
  - Graft dysfunction [Not Recovered/Not Resolved]
  - Cytomegalovirus infection [Not Recovered/Not Resolved]
  - Abdominal pain upper [Not Recovered/Not Resolved]
